FAERS Safety Report 24275495 (Version 1)
Quarter: 2024Q3

REPORT INFORMATION
  Report Type: Spontaneous
  Country: PT (occurrence: PT)
  Receive Date: 20240903
  Receipt Date: 20240903
  Transmission Date: 20241017
  Serious: Yes (Other)
  Sender: AUROBINDO
  Company Number: PT-INFARMED-T202408-324

PATIENT
  Age: 36 Year
  Sex: Male

DRUGS (1)
  1. METRONIDAZOLE [Suspect]
     Active Substance: METRONIDAZOLE
     Indication: Colitis
     Dosage: 500 MILLIGRAM, TWO TIMES A DAY (2 COMPRIMIDOS DE MANH? E 2 COMPRIMIDOS ? NOITE )
     Route: 048
     Dates: start: 20240810, end: 20240811

REACTIONS (2)
  - Vertigo [Recovered/Resolved]
  - Tinnitus [Recovered/Resolved]

NARRATIVE: CASE EVENT DATE: 20240810
